FAERS Safety Report 5046710-7 (Version None)
Quarter: 2006Q3

REPORT INFORMATION
  Report Type: 
  Country: None (occurrence: None)
  Receive Date: 20060705
  Receipt Date: 20060705
  Transmission Date: 20061208
  Serious: No
  Sender: FDA-Public Use
  Company Number: None

PATIENT

DRUGS (1)
  1. OCUPOWER MULTI-VITAMIN [Suspect]
     Indication: ROUTINE HEALTH MAINTENANCE
     Dosage: 6 CAPSULES DAILY ORAL
     Route: 048

REACTIONS (4)
  - MEDICATION ERROR [None]
  - PHARMACEUTICAL PRODUCT COMPLAINT [None]
  - STOMACH DISCOMFORT [None]
  - WRONG DRUG ADMINISTERED [None]
